FAERS Safety Report 21945641 (Version 4)
Quarter: 2023Q2

REPORT INFORMATION
  Report Type: Spontaneous
  Country: US (occurrence: US)
  Receive Date: 20230202
  Receipt Date: 20230623
  Transmission Date: 20230722
  Serious: No
  Sender: FDA-Public Use
  Company Number: US-PFIZER INC-PV202300018319

PATIENT
  Age: 65 Year
  Sex: Female
  Weight: 62.9 kg

DRUGS (2)
  1. IBRANCE [Suspect]
     Active Substance: PALBOCICLIB
     Indication: Hormone receptor positive breast cancer
     Dosage: 125 MG, DAILY (FOR 21 CONSECUTIVE DAYS FOLLOWED BY 7 DAYS OFF-28 DAY CYCLE)
     Route: 048
     Dates: start: 202104
  2. ANASTROZOLE [Concomitant]
     Active Substance: ANASTROZOLE
     Indication: Hormone receptor positive breast cancer
     Dosage: UNK
     Dates: start: 202104

REACTIONS (1)
  - Lacrimation increased [Unknown]
